FAERS Safety Report 6470334-8 (Version None)
Quarter: 2009Q4

REPORT INFORMATION
  Report Type: 
  Country: None (occurrence: None)
  Receive Date: 20091203
  Receipt Date: 20091201
  Transmission Date: 20100525
  Serious: Yes (Hospitalization, Disabling, Other)
  Sender: FDA-Public Use
  Company Number: US-MERCK-0804USA01343

PATIENT
  Age: 68 Year
  Sex: Female
  Weight: 55 kg

DRUGS (7)
  1. FOSAMAX [Suspect]
     Indication: OSTEOPOROSIS
     Route: 048
     Dates: start: 19960201, end: 20060401
  2. FOSAMAX [Suspect]
     Route: 048
     Dates: start: 20041101
  3. FOSAMAX [Suspect]
     Route: 048
     Dates: start: 20000525, end: 20060326
  4. LOPRESSOR [Concomitant]
     Indication: HYPERTENSION
     Route: 065
     Dates: start: 19890301
  5. SYNTHROID [Concomitant]
     Indication: HYPOTHYROIDISM
     Route: 065
     Dates: start: 19640101, end: 20041030
  6. HYDROCHLOROTHIAZIDE [Concomitant]
     Indication: HYPERTENSION
     Route: 065
     Dates: start: 19990101, end: 20040301
  7. ESTROGENS (UNSPECIFIED) [Concomitant]
     Route: 065
     Dates: start: 19950201, end: 20020101

REACTIONS (29)
  - ADVERSE EVENT [None]
  - ANGINA PECTORIS [None]
  - ARTHRITIS [None]
  - BONE LESION [None]
  - CARDIAC MURMUR [None]
  - CARPAL TUNNEL SYNDROME [None]
  - CERVICAL POLYP [None]
  - CHEST PAIN [None]
  - COLONIC POLYP [None]
  - CONTUSION [None]
  - DENTAL CARIES [None]
  - DIVERTICULUM [None]
  - EDENTULOUS [None]
  - EXOSTOSIS [None]
  - HAEMORRHOIDS [None]
  - HEPATITIS [None]
  - IMPAIRED HEALING [None]
  - NODAL OSTEOARTHRITIS [None]
  - ORAL DISORDER [None]
  - OSTEOMYELITIS [None]
  - OSTEONECROSIS [None]
  - OVERDOSE [None]
  - SINUS DISORDER [None]
  - SOMNOLENCE [None]
  - SPONDYLITIS [None]
  - THYROID DISORDER [None]
  - TOOTH DISORDER [None]
  - TOOTH INFECTION [None]
  - ULCER [None]
